FAERS Safety Report 8036545-5 (Version None)
Quarter: 2012Q1

REPORT INFORMATION
  Report Type: 
  Country: None (occurrence: None)
  Receive Date: 20120111
  Receipt Date: 20120103
  Transmission Date: 20120608
  Serious: Yes (Hospitalization)
  Sender: FDA-Public Use
  Company Number: FR-PFIZER INC-FR-WYE-G05374410

PATIENT
  Age: 56 Year
  Sex: Male

DRUGS (1)
  1. IBUPROFEN [Suspect]
     Indication: SEASONAL ALLERGY
     Dosage: 1.0 DF, 3X/DAY
     Route: 048
     Dates: start: 20020401

REACTIONS (1)
  - MYOCARDIAL INFARCTION [None]
